FAERS Safety Report 11060005 (Version 2)
Quarter: 2015Q2

REPORT INFORMATION
  Report Type: Spontaneous
  Country: US (occurrence: US)
  Receive Date: 20150423
  Receipt Date: 20150427
  Transmission Date: 20150821
  Serious: Yes (Death)
  Sender: FDA-Public Use
  Company Number: 2015SP001323

PATIENT
  Age: 47 Year
  Sex: Male

DRUGS (9)
  1. ATORVASTATIN [Concomitant]
     Active Substance: ATORVASTATIN
  2. ALL OTHER THERAPEUTIC PRODUCTS [Concomitant]
     Active Substance: UNSPECIFIED INGREDIENT
  3. AMBIEN [Concomitant]
     Active Substance: ZOLPIDEM TARTRATE
  4. ASPIRIN. [Concomitant]
     Active Substance: ASPIRIN
  5. LATUDA [Suspect]
     Active Substance: LURASIDONE HYDROCHLORIDE
     Route: 048
     Dates: start: 20141020
  6. IBUPROFEN. [Concomitant]
     Active Substance: IBUPROFEN
  7. NAPROXEN. [Concomitant]
     Active Substance: NAPROXEN
  8. GLYBURIDE. [Concomitant]
     Active Substance: GLYBURIDE
  9. TRAMADOL [Concomitant]
     Active Substance: TRAMADOL

REACTIONS (3)
  - Hepatic cirrhosis [Fatal]
  - Road traffic accident [Unknown]
  - Pain [Not Recovered/Not Resolved]

NARRATIVE: CASE EVENT DATE: 201501
